FAERS Safety Report 24759988 (Version 1)
Quarter: 2024Q4

REPORT INFORMATION
  Report Type: Spontaneous
  Country: CN (occurrence: CN)
  Receive Date: 20241220
  Receipt Date: 20241220
  Transmission Date: 20250114
  Serious: Yes (Other)
  Sender: BRACCO
  Company Number: CN-BRACCO-2022CN04454

PATIENT
  Age: 38 Year
  Sex: Female

DRUGS (3)
  1. SULPHUR HEXAFLUORIDE [Suspect]
     Active Substance: SULFUR HEXAFLUORIDE
     Indication: Ultrasound uterus
     Dosage: 13.1 MG, SINGLE
     Route: 042
     Dates: start: 20221013, end: 20221013
  2. SULPHUR HEXAFLUORIDE [Suspect]
     Active Substance: SULFUR HEXAFLUORIDE
     Indication: Ultrasound uterus
     Dosage: 13.1 MG, SINGLE
     Route: 042
     Dates: start: 20221013, end: 20221013
  3. SULPHUR HEXAFLUORIDE [Suspect]
     Active Substance: SULFUR HEXAFLUORIDE
     Indication: Ultrasound uterus
     Dosage: 13.1 MG, SINGLE
     Route: 042
     Dates: start: 20221013, end: 20221013

REACTIONS (3)
  - Off label use [Recovered/Resolved]
  - Anaphylactoid reaction [Recovered/Resolved]
  - Blood pressure decreased [Recovered/Resolved]

NARRATIVE: CASE EVENT DATE: 20221013
